FAERS Safety Report 20069356 (Version 1)
Quarter: 2021Q4

REPORT INFORMATION
  Report Type: Spontaneous
  Country: US (occurrence: None)
  Receive Date: 20211112
  Receipt Date: 20211112
  Transmission Date: 20220303
  Serious: Yes (Hospitalization)
  Sender: FDA-Public Use
  Company Number: None

PATIENT
  Age: 62 Year
  Sex: Female
  Weight: 73 kg

DRUGS (4)
  1. VERZENIO [Suspect]
     Active Substance: ABEMACICLIB
     Indication: Breast cancer
     Dosage: FREQUENCY : TWICE A DAY;?
     Route: 048
     Dates: start: 20210201
  2. CHOLESTYRAMINE [Concomitant]
     Active Substance: CHOLESTYRAMINE
  3. ONDANSETRON [Concomitant]
     Active Substance: ONDANSETRON
  4. LETROZOLE [Concomitant]
     Active Substance: LETROZOLE

REACTIONS (3)
  - Chest pain [None]
  - Pain [None]
  - Laboratory test abnormal [None]

NARRATIVE: CASE EVENT DATE: 20211101
